FAERS Safety Report 5280600-X (Version None)
Quarter: 2007Q1

REPORT INFORMATION
  Report Type: 
  Country: None (occurrence: None)
  Receive Date: 20061215
  Receipt Date: 20060313
  Transmission Date: 20070707
  Serious: Yes (Hospitalization, Other)
  Sender: FDA-Public Use
  Company Number: HQWYE344615MAR06

PATIENT
  Age: 41 Year
  Sex: Female
  Weight: 37.68 kg

DRUGS (2)
  1. EFFEXOR XR [Suspect]
     Indication: DEPRESSION
     Dosage: ONE WEEK'S WORTH OF MEDICATIONS (OVERDOSE AMOUNT),ORAL
     Route: 048
     Dates: start: 20060301, end: 20060301
  2. RISPERDAL [Suspect]
     Indication: HALLUCINATION
     Dosage: 0.5 MG 1X PER 1 DAY
     Dates: start: 20060223

REACTIONS (5)
  - CONVULSION [None]
  - HEADACHE [None]
  - INTENTIONAL OVERDOSE [None]
  - STRESS [None]
  - SUICIDE ATTEMPT [None]
